FAERS Safety Report 9878387 (Version 1)
Quarter: 2014Q1

REPORT INFORMATION
  Report Type: Spontaneous
  Country: US (occurrence: US)
  Receive Date: 20140206
  Receipt Date: 20140206
  Transmission Date: 20141002
  Serious: No
  Sender: FDA-Public Use
  Company Number: US-PFIZER INC-2014031073

PATIENT
  Sex: Male

DRUGS (1)
  1. VIAGRA [Suspect]
     Dosage: THREE VIAGRA AT ONCE IN A DAY

REACTIONS (3)
  - Incorrect dose administered [Unknown]
  - Penis disorder [Unknown]
  - Erection increased [Unknown]
